FAERS Safety Report 11610818 (Version 3)
Quarter: 2016Q1

REPORT INFORMATION
  Report Type: Spontaneous
  Country: FR (occurrence: FR)
  Receive Date: 20151008
  Receipt Date: 20160321
  Transmission Date: 20160525
  Serious: Yes (Hospitalization, Disabling, Other)
  Sender: FDA-Public Use
  Company Number: FR-ACTAVIS-2015-21519

PATIENT
  Age: 83 Year
  Sex: Male

DRUGS (3)
  1. PLAVIX [Concomitant]
     Active Substance: CLOPIDOGREL BISULFATE
     Indication: PRODUCT USED FOR UNKNOWN INDICATION
     Dosage: UNK
     Route: 065
  2. FINASTERIDE. [Concomitant]
     Active Substance: FINASTERIDE
     Indication: BENIGN PROSTATIC HYPERPLASIA
     Dosage: UNK
     Route: 065
  3. GEMCITABINE [Suspect]
     Active Substance: GEMCITABINE\GEMCITABINE HYDROCHLORIDE
     Indication: ADENOCARCINOMA PANCREAS
     Dosage: 1000 MG/M2  AS MONOTHERAPY OVER A 30-MINUTE ON DAYS 1, 8, AND 15 OF A 28-DAY CYCLE
     Route: 042
     Dates: start: 201303

REACTIONS (1)
  - Pulmonary veno-occlusive disease [Recovering/Resolving]

NARRATIVE: CASE EVENT DATE: 201309
